FAERS Safety Report 8400850-0 (Version None)
Quarter: 2012Q2

REPORT INFORMATION
  Report Type: 
  Country: None (occurrence: None)
  Receive Date: 20120601
  Receipt Date: 20120523
  Transmission Date: 20120825
  Serious: Yes (Other)
  Sender: FDA-Public Use
  Company Number: DK-B.I. PHARMACEUTICALS,INC./RIDGEFIELD-2012-SW-00424DB

PATIENT
  Sex: Male
  Weight: 130 kg

DRUGS (13)
  1. KININ ^DAK^ [Concomitant]
     Indication: MUSCLE SPASMS
     Dosage: 100 MG
     Route: 048
  2. CEFUROXIM ^FRESENIUS KABI^ [Concomitant]
     Indication: INFECTION
     Dosage: 4500 MG
     Route: 042
     Dates: start: 20111129, end: 20111205
  3. METOPROLOL SUCCINATE [Concomitant]
     Indication: CARDIAC DISORDER
     Dosage: 100 MG
     Route: 048
     Dates: start: 20111125
  4. IMOCLONE [Concomitant]
     Indication: INSOMNIA
     Dosage: PHARMACEUTICAL FORM: 82, STRENGTH: 7.5 MG, DOSE: ONE TABLET MAXIMUM ONCE DAILY
     Route: 048
     Dates: start: 20111129, end: 20111213
  5. SIMVACOP [Concomitant]
     Indication: HYPERCHOLESTEROLAEMIA
     Dosage: 20 MG
     Route: 048
     Dates: start: 20070828
  6. CENTYL MED KALIUMKLORID [Concomitant]
     Indication: DIURETIC THERAPY
     Dosage: PHARMACEUTICAL FORM: 9, STRENGTH: 2.5 + 573  MG, DOSE: ONE TABLET IN THE MORNING
     Route: 048
     Dates: start: 20070828
  7. ADALAT [Concomitant]
     Indication: HYPERTENSION
     Dosage: 60 MG
     Route: 048
     Dates: start: 20100817
  8. FRUSAMIL [Concomitant]
     Indication: DIURETIC THERAPY
     Dosage: PHARMACEUTICAL FORM: 82, STRENGTH: 40+5  MG, DOSE: ONE TABLET IN THE MORNING
     Route: 048
     Dates: start: 20111120
  9. DIAMICRON UNO [Concomitant]
     Indication: DIABETES MELLITUS
     Dosage: 30 MG
     Route: 048
     Dates: start: 20111125
  10. TRAMADOL HCL [Concomitant]
     Indication: PAIN
     Dosage: PHARMACEUTICAL FORM: 245, STRENGTH: 50 MG, DOSE: ONE TABLET MAXIMUM 3 TIMES DAILY
     Route: 048
     Dates: start: 20111126, end: 20111212
  11. MORFIN ^DAK^ [Concomitant]
     Indication: PAIN
     Dosage: PHARMACEUTICAL FORM: 245, STRENGTH: 10 MG, DOSE: ONE TABLET MAXIMUM 6 TIMES DAILY
     Route: 048
     Dates: start: 20111126, end: 20111212
  12. PRADAXA [Suspect]
     Indication: ATRIAL FIBRILLATION
     Dosage: 220 MG
     Route: 048
     Dates: start: 20111122, end: 20111212
  13. FLUCONAZOLE [Suspect]
     Indication: URINARY TRACT INFECTION FUNGAL
     Dosage: 100 MG
     Route: 048
     Dates: start: 20111202, end: 20111212

REACTIONS (4)
  - DRUG INTERACTION [None]
  - DUODENAL ULCER [None]
  - MELAENA [None]
  - SMALL INTESTINAL HAEMORRHAGE [None]
